FAERS Safety Report 19728666 (Version 1)
Quarter: 2021Q3

REPORT INFORMATION
  Report Type: Spontaneous
  Country: FI (occurrence: FI)
  Receive Date: 20210820
  Receipt Date: 20210820
  Transmission Date: 20211014
  Serious: Yes (Hospitalization, Other)
  Sender: FDA-Public Use
  Company Number: FI-BAYER-2021-157624

PATIENT
  Age: 19 Year
  Sex: Female

DRUGS (1)
  1. KYLEENA [Suspect]
     Active Substance: LEVONORGESTREL
     Indication: CONTRACEPTION
     Dosage: 17.5  ?G PER DAY, CONTINUOUSLY
     Route: 015
     Dates: start: 20190201

REACTIONS (5)
  - Ectopic pregnancy [Recovering/Resolving]
  - Fallopian tube operation [Recovering/Resolving]
  - Ectopic pregnancy with contraceptive device [Recovering/Resolving]
  - Ectopic pregnancy termination [Recovering/Resolving]
  - Internal haemorrhage [Recovering/Resolving]

NARRATIVE: CASE EVENT DATE: 20210528
